FAERS Safety Report 17128663 (Version 3)
Quarter: 2020Q1

REPORT INFORMATION
  Report Type: Spontaneous
  Country: US (occurrence: US)
  Receive Date: 20191209
  Receipt Date: 20200107
  Transmission Date: 20200409
  Serious: No
  Sender: FDA-Public Use
  Company Number: US-BEH-2019110322

PATIENT

DRUGS (1)
  1. HIZENTRA [Suspect]
     Active Substance: HUMAN IMMUNOGLOBULIN G
     Dosage: UNK
     Route: 065
     Dates: start: 201911

REACTIONS (5)
  - Injection site pain [Unknown]
  - Injection site infection [Unknown]
  - Product contamination [Unknown]
  - Injection site erythema [Unknown]
  - Injection site swelling [Unknown]
